FAERS Safety Report 12556920 (Version 2)
Quarter: 2016Q3

REPORT INFORMATION
  Report Type: Spontaneous
  Country: JP (occurrence: JP)
  Receive Date: 20160714
  Receipt Date: 20160721
  Transmission Date: 20161109
  Serious: Yes (Other)
  Sender: FDA-Public Use
  Company Number: JP-009507513-1607JPN005967

PATIENT

DRUGS (1)
  1. TIENAM FOR INTRAVENOUS DRIP INFUSION (KIT) [Suspect]
     Active Substance: CILASTATIN SODIUM\IMIPENEM
     Dosage: DAILY DOSE UNKNOWN
     Route: 041

REACTIONS (1)
  - Diabetes insipidus [Not Recovered/Not Resolved]
